FAERS Safety Report 8192847-3 (Version None)
Quarter: 2012Q1

REPORT INFORMATION
  Report Type: 
  Country: None (occurrence: None)
  Receive Date: 20120308
  Receipt Date: 20120227
  Transmission Date: 20120608
  Serious: Yes (Hospitalization, Other)
  Sender: FDA-Public Use
  Company Number: CA-JNJFOC-20120214253

PATIENT
  Sex: Female

DRUGS (1)
  1. REMICADE [Suspect]
     Indication: CROHN'S DISEASE
     Route: 042
     Dates: start: 20110301, end: 20110101

REACTIONS (5)
  - INTESTINAL CYST [None]
  - WEIGHT DECREASED [None]
  - INTESTINAL RESECTION [None]
  - THROMBOSIS [None]
  - CROHN'S DISEASE [None]
